FAERS Safety Report 7036898-0 (Version None)
Quarter: 2010Q4

REPORT INFORMATION
  Report Type: 
  Country: None (occurrence: None)
  Receive Date: 20101011
  Receipt Date: 20100930
  Transmission Date: 20110411
  Serious: Yes (Congenital Anomaly)
  Sender: FDA-Public Use
  Company Number: JP-ASTRAZENECA-2010SE46925

PATIENT

DRUGS (1)
  1. BLOPRESS [Suspect]
     Route: 064

REACTIONS (3)
  - RENAL FAILURE CHRONIC [None]
  - SKULL MALFORMATION [None]
  - TALIPES [None]
